FAERS Safety Report 4615974-3 (Version None)
Quarter: 2005Q1

REPORT INFORMATION
  Report Type: 
  Country: None (occurrence: None)
  Receive Date: 20050318
  Receipt Date: 20050307
  Transmission Date: 20050727
  Serious: Yes (Life-Threatening, Hospitalization)
  Sender: FDA-Public Use
  Company Number: 2005041572

PATIENT
  Age: 34 Year
  Sex: Male

DRUGS (5)
  1. BEXTRA [Suspect]
     Indication: BACK PAIN
     Dosage: 40 MG (40 MG, 1 IN 1 D), ORAL
     Route: 048
     Dates: start: 20050105, end: 20050110
  2. DICLOFENAC SODIUM [Suspect]
     Indication: BACK PAIN
     Dosage: 150 MG (40 MG, 1 IN 1 D), ORAL
     Route: 048
     Dates: start: 20050120, end: 20050122
  3. PIROXICAM BETADEX (PIROXICAM BETADEX) [Suspect]
     Indication: BACK PAIN
     Dosage: 20 MG (20 MG, 1 IN 1 D), ORAL
     Route: 048
     Dates: start: 20050113, end: 20050120
  4. CODEINE PHOSPHATE AND ACETAMINOPHEN [Concomitant]
  5. LIDOCAINE HYDROCHLORIDE [Concomitant]

REACTIONS (6)
  - ABDOMINAL PAIN [None]
  - ANAEMIA [None]
  - BLOOD PRESSURE IMMEASURABLE [None]
  - DUODENAL ULCER [None]
  - HAEMATEMESIS [None]
  - MELAENA [None]
